FAERS Safety Report 9668918 (Version 1)
Quarter: 2013Q4

REPORT INFORMATION
  Report Type: Spontaneous
  Country: US (occurrence: None)
  Receive Date: 20131104
  Receipt Date: 20131104
  Transmission Date: 20140711
  Serious: Yes (Other)
  Sender: FDA-Public Use
  Company Number: None

PATIENT
  Age: 13 Year
  Sex: Female
  Weight: 42.18 kg

DRUGS (1)
  1. ALBUTEROL SULFATE [Suspect]
     Indication: PNEUMONIA
     Dosage: ONE VIAL EVERY 4 TO 6 HRS., AS NEEDED, INHALATION
     Route: 055
     Dates: start: 20130906, end: 20131101

REACTIONS (7)
  - Drug ineffective [None]
  - Wheezing [None]
  - Cough [None]
  - Dysphagia [None]
  - Chest discomfort [None]
  - Chest pain [None]
  - Rash [None]
